FAERS Safety Report 6801284-2 (Version None)
Quarter: 2010Q2

REPORT INFORMATION
  Report Type: 
  Country: None (occurrence: None)
  Receive Date: 20100629
  Receipt Date: 20100607
  Transmission Date: 20101027
  Serious: No
  Sender: FDA-Public Use
  Company Number: A0861218A

PATIENT
  Age: 72 Year
  Sex: Male
  Weight: 100 kg

DRUGS (8)
  1. LAMICTAL [Suspect]
     Dosage: 150MG PER DAY
     Route: 048
     Dates: start: 20090917
  2. ATIVAN [Concomitant]
  3. AVODART [Concomitant]
  4. BENICAR [Concomitant]
  5. ASPIRIN [Concomitant]
  6. NORVASC [Concomitant]
  7. MULTI-VITAMINS [Concomitant]
  8. STOOL SOFTENER [Concomitant]

REACTIONS (2)
  - ALOPECIA [None]
  - IRIS HYPERPIGMENTATION [None]
